FAERS Safety Report 16333993 (Version 1)
Quarter: 2019Q2

REPORT INFORMATION
  Report Type: Spontaneous
  Country: ES (occurrence: ES)
  Receive Date: 20190520
  Receipt Date: 20190520
  Transmission Date: 20190711
  Serious: Yes (Death, Hospitalization, Other)
  Sender: FDA-Public Use
  Company Number: ES-JNJFOC-20170800911

PATIENT

DRUGS (1)
  1. EVICEL [Suspect]
     Active Substance: FIBRINOGEN HUMAN\THROMBIN HUMAN
     Indication: HAEMOSTASIS
     Route: 061

REACTIONS (9)
  - Cardio-respiratory arrest [Fatal]
  - Urinary tract infection [Unknown]
  - Prostate infection [Unknown]
  - Post procedural haemorrhage [Unknown]
  - Pyrexia [Fatal]
  - Death [Fatal]
  - Pneumonia [Fatal]
  - Adverse event [Unknown]
  - Procedural complication [Unknown]
